FAERS Safety Report 13238522 (Version 1)
Quarter: 2017Q1

REPORT INFORMATION
  Report Type: Spontaneous
  Country: US (occurrence: US)
  Receive Date: 20170216
  Receipt Date: 20170216
  Transmission Date: 20170428
  Serious: No
  Sender: FDA-Public Use
  Company Number: US-WATSON-2016-11773

PATIENT
  Age: 58 Year
  Sex: Female

DRUGS (2)
  1. METRONIDAZOLE (WATSON LABORATORIES) [Suspect]
     Active Substance: METRONIDAZOLE
     Indication: DIARRHOEA
     Dosage: 500 MG, QID
     Route: 048
     Dates: start: 201605, end: 20160522
  2. METRONIDAZOLE (WATSON LABORATORIES) [Suspect]
     Active Substance: METRONIDAZOLE
     Indication: GIARDIASIS
     Dosage: 500 MG, TID
     Route: 048
     Dates: start: 201605, end: 201605

REACTIONS (8)
  - Dizziness [Recovering/Resolving]
  - Dysphonia [Recovering/Resolving]
  - Nausea [Recovering/Resolving]
  - Trismus [Recovering/Resolving]
  - Muscle contractions involuntary [Recovering/Resolving]
  - Headache [Recovering/Resolving]
  - Vomiting [Recovering/Resolving]
  - Speech disorder [Recovering/Resolving]
